FAERS Safety Report 5096700-3 (Version None)
Quarter: 2006Q3

REPORT INFORMATION
  Report Type: 
  Country: None (occurrence: None)
  Receive Date: 20060831
  Receipt Date: 20060823
  Transmission Date: 20061208
  Serious: Yes (Hospitalization)
  Sender: FDA-Public Use
  Company Number: E3810-00171-SPO-JP

PATIENT
  Age: 86 Year
  Sex: Female
  Weight: 51 kg

DRUGS (6)
  1. RABEPRAZOLE SODIUM [Suspect]
     Indication: GASTRIC ULCER
     Dosage: 10 MG, 1 IN 1 D, ORAL
     Route: 048
     Dates: start: 20060719, end: 20060822
  2. SUCRALFATE [Concomitant]
  3. SELBEX (TEPRENONE) [Concomitant]
  4. PURSENNID (SENNA LEAF) [Concomitant]
  5. RIZE (CLOTIAZEPAM) [Concomitant]
  6. OMEPRAZOLE [Concomitant]

REACTIONS (6)
  - BLOOD ALKALINE PHOSPHATASE INCREASED [None]
  - GAMMA-GLUTAMYLTRANSFERASE INCREASED [None]
  - LYMPHOCYTE COUNT INCREASED [None]
  - LYMPHOCYTE MORPHOLOGY ABNORMAL [None]
  - POSTOPERATIVE INFECTION [None]
  - PYREXIA [None]
